FAERS Safety Report 24004455 (Version 1)
Quarter: 2024Q2

REPORT INFORMATION
  Report Type: Spontaneous
  Country: DE (occurrence: DE)
  Receive Date: 20240624
  Receipt Date: 20240624
  Transmission Date: 20240716
  Serious: Yes (Death, Hospitalization, Other)
  Sender: FDA-Public Use
  Company Number: DE-EMA-DD-20240612-7482689-071237

PATIENT
  Age: 74 Year
  Sex: Male
  Weight: 172 kg

DRUGS (1)
  1. MEROPENEM [Suspect]
     Active Substance: MEROPENEM
     Indication: Abdominal infection
     Dosage: 3 GRAM, ONCE A DAY (1 G, TID)
     Route: 042
     Dates: start: 20120629, end: 20120706

REACTIONS (2)
  - Pancreatitis [Fatal]
  - Multiple organ dysfunction syndrome [Fatal]

NARRATIVE: CASE EVENT DATE: 20120712
